FAERS Safety Report 4423704-3 (Version None)
Quarter: 2004Q3

REPORT INFORMATION
  Report Type: 
  Country: None (occurrence: None)
  Receive Date: 20040811
  Receipt Date: 20040726
  Transmission Date: 20050211
  Serious: No
  Sender: FDA-Public Use
  Company Number: US-MERCK-0407USA02348

PATIENT
  Age: 51 Year
  Sex: Female
  Weight: 87 kg

DRUGS (2)
  1. PULMICORT [Concomitant]
     Route: 065
  2. SINGULAIR [Suspect]
     Indication: ASTHMA
     Route: 048
     Dates: start: 20030101, end: 20040701

REACTIONS (1)
  - HEPATITIS [None]
